FAERS Safety Report 6265191-9 (Version None)
Quarter: 2009Q3

REPORT INFORMATION
  Report Type: 
  Country: None (occurrence: None)
  Receive Date: 20090713
  Receipt Date: 20090707
  Transmission Date: 20100115
  Serious: Yes (Hospitalization)
  Sender: FDA-Public Use
  Company Number: PHHY2009JP28301

PATIENT
  Age: 19 Year
  Sex: Female

DRUGS (8)
  1. DICLOFENAC SODIUM [Suspect]
     Dosage: UNK
  2. ATROPINE SULFATE [Concomitant]
     Dosage: UNK
     Route: 042
  3. ULTIVA [Concomitant]
  4. DIPRIVAN [Concomitant]
  5. ROCURONIUM BROMIDE [Concomitant]
  6. FENTANEST [Concomitant]
  7. RINDERON [Concomitant]
  8. CEFAMEZIN [Concomitant]

REACTIONS (1)
  - CHROMATURIA [None]
